FAERS Safety Report 15728188 (Version 1)
Quarter: 2018Q4

REPORT INFORMATION
  Report Type: Spontaneous
  Country: US (occurrence: US)
  Receive Date: 20181217
  Receipt Date: 20181217
  Transmission Date: 20190205
  Serious: No
  Sender: FDA-Public Use
  Company Number: US-BAYER-2018-232574

PATIENT
  Age: 83 Year
  Sex: Female
  Weight: 82 kg

DRUGS (2)
  1. STOOL SOFTENER (DOCUSATE) [Concomitant]
     Active Substance: DOCUSATE
     Dosage: UNK
  2. MIRALAX [Suspect]
     Active Substance: POLYETHYLENE GLYCOL 3350
     Indication: GASTROINTESTINAL DISORDER
     Dosage: UNK
     Route: 048
     Dates: start: 201811, end: 20181212

REACTIONS (4)
  - Swollen tongue [Unknown]
  - Wrong technique in product usage process [Unknown]
  - Tongue discomfort [Unknown]
  - Throat irritation [Unknown]
